FAERS Safety Report 7908005-0 (Version None)
Quarter: 2011Q4

REPORT INFORMATION
  Report Type: 
  Country: None (occurrence: None)
  Receive Date: 20111110
  Receipt Date: 20111101
  Transmission Date: 20120403
  Serious: Yes (Other)
  Sender: FDA-Public Use
  Company Number: US-ASTRAZENECA-2011SE66469

PATIENT
  Age: 62 Year
  Sex: Male

DRUGS (2)
  1. SYMBICORT [Suspect]
     Route: 055
  2. SEROQUEL [Suspect]
     Route: 048

REACTIONS (3)
  - BREAST CANCER [None]
  - DYSPNOEA [None]
  - DRUG DOSE OMISSION [None]
